FAERS Safety Report 7070118-6 (Version None)
Quarter: 2010Q4

REPORT INFORMATION
  Report Type: 
  Country: None (occurrence: None)
  Receive Date: 20101028
  Receipt Date: 20100909
  Transmission Date: 20110411
  Serious: No
  Sender: FDA-Public Use
  Company Number: US-WYE-H17447510

PATIENT
  Age: 51 Year
  Sex: Female
  Weight: 79.45 kg

DRUGS (2)
  1. ADVIL [Suspect]
     Indication: MYALGIA
     Route: 048
     Dates: start: 20100908
  2. ADVIL [Suspect]
     Indication: PAIN

REACTIONS (1)
  - PRURITUS GENERALISED [None]
